FAERS Safety Report 11813527 (Version 2)
Quarter: 2016Q1

REPORT INFORMATION
  Report Type: Spontaneous
  Country: US (occurrence: US)
  Receive Date: 20151209
  Receipt Date: 20160118
  Transmission Date: 20160525
  Serious: Yes (Other)
  Sender: FDA-Public Use
  Company Number: US-BAYER-2015-480579

PATIENT
  Age: 26 Year
  Sex: Female
  Weight: 70.3 kg

DRUGS (3)
  1. TRI-SPRINTEC [Concomitant]
     Active Substance: ETHINYL ESTRADIOL\NORGESTIMATE
  2. MIRENA [Suspect]
     Active Substance: LEVONORGESTREL
     Indication: CONTRACEPTION
     Dosage: 20 MCG/24HR, CONT
     Route: 015
     Dates: start: 20151014
  3. ZOFRAN [Concomitant]
     Active Substance: ONDANSETRON HYDROCHLORIDE
     Indication: NAUSEA

REACTIONS (5)
  - Vaginal haemorrhage [Not Recovered/Not Resolved]
  - Post procedural haemorrhage [Recovered/Resolved]
  - Device expulsion [None]
  - Abdominal pain lower [Recovered/Resolved]
  - Ovarian cyst [None]

NARRATIVE: CASE EVENT DATE: 2015
